FAERS Safety Report 25154002 (Version 2)
Quarter: 2025Q2

REPORT INFORMATION
  Report Type: Report from Study
  Country: IN (occurrence: IN)
  Receive Date: 20250403
  Receipt Date: 20250417
  Transmission Date: 20250717
  Serious: Yes (Death)
  Sender: ROCHE
  Company Number: IN-ROCHE-3547770

PATIENT
  Age: 57 Year
  Sex: Male

DRUGS (2)
  1. TECENTRIQ [Suspect]
     Active Substance: ATEZOLIZUMAB
     Indication: Hepatocellular carcinoma
     Dosage: FREQUENCY 1 INTERVAL 21 DAY
     Route: 042
     Dates: start: 20231004
  2. TECENTRIQ [Suspect]
     Active Substance: ATEZOLIZUMAB
     Indication: Non-small cell lung cancer
     Route: 042
     Dates: start: 20241218

REACTIONS (6)
  - Off label use [Unknown]
  - Malaise [Unknown]
  - Pain [Unknown]
  - Diet refusal [Unknown]
  - Full blood count decreased [Unknown]
  - Death [Fatal]
